FAERS Safety Report 9811202 (Version 2)
Quarter: 2015Q4

REPORT INFORMATION
  Report Type: Spontaneous
  Country: US (occurrence: US)
  Receive Date: 20140110
  Receipt Date: 20151228
  Transmission Date: 20160305
  Serious: Yes (Death)
  Sender: FDA-Public Use
  Company Number: US-SANOFI-AVENTIS-2013SA048560

PATIENT
  Age: 84 Year

DRUGS (1)
  1. PLAVIX [Suspect]
     Active Substance: CLOPIDOGREL BISULFATE
     Indication: STENT PLACEMENT
     Route: 048
     Dates: start: 2001, end: 20080127

REACTIONS (2)
  - Thrombotic thrombocytopenic purpura [Fatal]
  - Haemorrhage [Fatal]

NARRATIVE: CASE EVENT DATE: 200708
